FAERS Safety Report 5607901-7 (Version None)
Quarter: 2008Q1

REPORT INFORMATION
  Report Type: 
  Country: None (occurrence: None)
  Receive Date: 20080130
  Receipt Date: 20080124
  Transmission Date: 20080703
  Serious: Yes (Life-Threatening)
  Sender: FDA-Public Use
  Company Number: BE-BRISTOL-MYERS SQUIBB COMPANY-14055941

PATIENT
  Age: 72 Year

DRUGS (4)
  1. CETUXIMAB [Suspect]
     Indication: COLON CANCER
     Dosage: STRENGTH:5MG/ML
     Route: 041
     Dates: start: 20080115, end: 20080115
  2. OXALIPLATIN [Suspect]
     Indication: COLON CANCER
     Route: 042
     Dates: start: 20071218, end: 20071218
  3. FLUOROURACIL [Suspect]
     Indication: COLON CANCER
     Route: 042
     Dates: start: 20071218, end: 20071218
  4. FOLINIC ACID [Suspect]
     Indication: COLON CANCER
     Route: 042
     Dates: start: 20071218, end: 20071218

REACTIONS (1)
  - ENDOCARDITIS BACTERIAL [None]
